FAERS Safety Report 4354376-4 (Version None)
Quarter: 2004Q2

REPORT INFORMATION
  Report Type: 
  Country: None (occurrence: None)
  Receive Date: 20040506
  Receipt Date: 20031016
  Transmission Date: 20050107
  Serious: Yes (Hospitalization)
  Sender: FDA-Public Use
  Company Number: US-MERCK-0310USA01949

PATIENT
  Age: 74 Year
  Sex: Female
  Weight: 75 kg

DRUGS (8)
  1. LASIX [Concomitant]
     Route: 065
  2. HUMULIN [Concomitant]
     Route: 065
  3. VIOXX [Suspect]
     Indication: ARTHRITIS
     Route: 048
     Dates: start: 20000622, end: 20000101
  4. VIOXX [Suspect]
     Route: 048
     Dates: start: 20000101, end: 20000801
  5. VIOXX [Suspect]
     Route: 048
  6. VIOXX [Suspect]
     Indication: TENDONITIS
     Route: 048
     Dates: start: 20000622, end: 20000101
  7. VIOXX [Suspect]
     Route: 048
     Dates: start: 20000101, end: 20000801
  8. VIOXX [Suspect]
     Route: 048

REACTIONS (19)
  - ADVERSE EVENT [None]
  - ANXIETY [None]
  - BLOOD GLUCOSE FLUCTUATION [None]
  - CAROTID ARTERY STENOSIS [None]
  - DIARRHOEA [None]
  - EMOTIONAL DISTRESS [None]
  - FEMORAL ARTERIAL STENOSIS [None]
  - HALITOSIS [None]
  - HYPERTENSION [None]
  - LACUNAR INFARCTION [None]
  - LOCALISED INFECTION [None]
  - OEDEMA [None]
  - PAIN [None]
  - PAIN IN EXTREMITY [None]
  - POPLITEAL STENOSIS [None]
  - RECTAL HAEMORRHAGE [None]
  - SKIN CANDIDA [None]
  - TRANSIENT ISCHAEMIC ATTACK [None]
  - VAGINAL HAEMORRHAGE [None]
